FAERS Safety Report 9181315 (Version 1)
Quarter: 2013Q1

REPORT INFORMATION
  Report Type: Spontaneous
  Country: US (occurrence: US)
  Receive Date: 20130322
  Receipt Date: 20130322
  Transmission Date: 20140127
  Serious: Yes (Hospitalization)
  Sender: FDA-Public Use
  Company Number: US-BAYER-2013-033338

PATIENT
  Age: 44 Year
  Sex: Female
  Weight: 104.31 kg

DRUGS (7)
  1. YASMIN [Suspect]
  2. IRON SULFATE [Concomitant]
  3. VITAMIN C [Concomitant]
  4. FERO-FOLIC [Concomitant]
  5. ROBITUSSIN DM [Concomitant]
  6. ZOSYN [Concomitant]
  7. KEFLEX [Concomitant]

REACTIONS (2)
  - Pulmonary embolism [None]
  - Deep vein thrombosis [None]
